FAERS Safety Report 22097345 (Version 1)
Quarter: 2023Q1

REPORT INFORMATION
  Report Type: Spontaneous
  Country: US (occurrence: US)
  Receive Date: 20230315
  Receipt Date: 20230315
  Transmission Date: 20230418
  Serious: Yes (Life-Threatening, Hospitalization, Other)
  Sender: FDA-Public Use
  Company Number: US-MLMSERVICE-20230303-4134627-2

PATIENT

DRUGS (1)
  1. TESTOSTERONE [Suspect]
     Active Substance: TESTOSTERONE
     Indication: Transgender hormonal therapy
     Dosage: 0.25 MILLIGRAM, 1 WEEK
     Route: 030

REACTIONS (2)
  - Papilloedema [Not Recovered/Not Resolved]
  - Idiopathic intracranial hypertension [Recovering/Resolving]
